FAERS Safety Report 21027580 (Version 1)
Quarter: 2022Q2

REPORT INFORMATION
  Report Type: Spontaneous
  Country: US (occurrence: US)
  Receive Date: 20220630
  Receipt Date: 20220630
  Transmission Date: 20220720
  Serious: No
  Sender: FDA-Public Use
  Company Number: US-BAYER-2022A084634

PATIENT
  Age: 53 Year
  Sex: Female

DRUGS (1)
  1. CLIMARA PRO [Suspect]
     Active Substance: ESTRADIOL\LEVONORGESTREL
     Route: 062

REACTIONS (6)
  - Device adhesion issue [None]
  - Rash [None]
  - Wrong technique in product usage process [None]
  - Migraine [None]
  - Depression [Recovering/Resolving]
  - Therapeutic response unexpected [None]
